FAERS Safety Report 10154749 (Version 2)
Quarter: 2014Q2

REPORT INFORMATION
  Report Type: Spontaneous
  Country: US (occurrence: None)
  Receive Date: 20140502
  Receipt Date: 20140612
  Transmission Date: 20141212
  Serious: Yes (Hospitalization)
  Sender: FDA-Public Use
  Company Number: US-001001

PATIENT
  Age: 64 Year
  Sex: Male

DRUGS (2)
  1. GATTEX [Suspect]
     Route: 058
     Dates: start: 20131212
  2. SOLUTIONS FOR PARENTERAL NUTRITION [Concomitant]

REACTIONS (3)
  - Surgery [None]
  - Malaise [None]
  - Colostomy [None]
